FAERS Safety Report 8580166-2 (Version None)
Quarter: 2012Q3

REPORT INFORMATION
  Report Type: 
  Country: None (occurrence: None)
  Receive Date: 20120808
  Receipt Date: 20120801
  Transmission Date: 20120928
  Serious: Yes (Other)
  Sender: FDA-Public Use
  Company Number: CA-B.I. PHARMACEUTICALS,INC./RIDGEFIELD-2012-CN-01664CN

PATIENT
  Age: 78 Year
  Sex: Female

DRUGS (10)
  1. ATENOLOL [Concomitant]
  2. ASPIRIN [Concomitant]
  3. GENTEAL [Concomitant]
     Dosage: AS NEEDED
  4. PRADAXA [Suspect]
     Indication: ATRIAL FIBRILLATION
     Dosage: 220 MG
     Dates: start: 20120213, end: 20120508
  5. ACETAMINOPHEN [Concomitant]
     Dosage: AS NEEDED
  6. ELOCON [Concomitant]
     Dosage: AS NEEDED
  7. LASIX [Concomitant]
     Dosage: 60 MG IN MORNING AND 20 MG DINNER TIME
  8. PRO-CAL-D [Concomitant]
     Dosage: 500-400 MG BID
  9. FOSAMAX [Concomitant]
     Dosage: 70 MG WEEKLY
  10. PANTOPRAZOLE SODIUM [Concomitant]

REACTIONS (9)
  - JAUNDICE [None]
  - WEIGHT INCREASED [None]
  - PRURITUS [None]
  - FATIGUE [None]
  - HEPATIC FAILURE [None]
  - ACTIVITIES OF DAILY LIVING IMPAIRED [None]
  - HYPOKALAEMIA [None]
  - SOMNOLENCE [None]
  - DIZZINESS [None]
